FAERS Safety Report 10153748 (Version 1)
Quarter: 2014Q2

REPORT INFORMATION
  Report Type: Spontaneous
  Country: US (occurrence: US)
  Receive Date: 20140506
  Receipt Date: 20140506
  Transmission Date: 20141212
  Serious: No
  Sender: FDA-Public Use
  Company Number: US-009507513-1404USA014460

PATIENT
  Sex: Female
  Weight: 65.76 kg

DRUGS (1)
  1. NEXPLANON [Suspect]
     Indication: CONTRACEPTION
     Dosage: 1 ROD FOR 3 YEARS, SUBDERMALLY IN LEFT ARM
     Route: 059
     Dates: start: 20130723

REACTIONS (3)
  - Implant site discolouration [Unknown]
  - Implant site pruritus [Unknown]
  - Implant site pain [Unknown]
